FAERS Safety Report 6007856-X (Version None)
Quarter: 2008Q4

REPORT INFORMATION
  Report Type: 
  Country: None (occurrence: None)
  Receive Date: 20081217
  Receipt Date: 20080703
  Transmission Date: 20090506
  Serious: No
  Sender: FDA-Public Use
  Company Number: US-ASTRAZENECA-2008UW13410

PATIENT
  Age: 65 Year
  Sex: Female
  Weight: 79.8 kg

DRUGS (8)
  1. CRESTOR [Suspect]
     Indication: BLOOD CHOLESTEROL INCREASED
     Dosage: 5 MG
     Route: 048
     Dates: start: 20080707
  2. SYNTHROID [Concomitant]
  3. ZYPREXA [Concomitant]
     Dosage: 2.5 MG
  4. VALIUM [Concomitant]
     Dosage: 5 MG
  5. CITRUCEL [Concomitant]
  6. VITAMINS [Concomitant]
  7. CALCIUM [Concomitant]
  8. FISH OIL [Concomitant]

REACTIONS (3)
  - INSOMNIA [None]
  - PAIN [None]
  - URINE OUTPUT INCREASED [None]
